FAERS Safety Report 25207418 (Version 1)
Quarter: 2025Q2

REPORT INFORMATION
  Report Type: Report from Study
  Country: IT (occurrence: IT)
  Receive Date: 20250417
  Receipt Date: 20250417
  Transmission Date: 20250717
  Serious: Yes (Other)
  Sender: ACCORD
  Company Number: None

PATIENT
  Age: 54 Year
  Sex: Male
  Weight: 70 kg

DRUGS (3)
  1. IRINOTECAN [Suspect]
     Active Substance: IRINOTECAN
     Indication: Rectal adenocarcinoma
     Dates: start: 20241028, end: 20250305
  2. BEVACIZUMAB [Suspect]
     Active Substance: BEVACIZUMAB
     Indication: Rectal adenocarcinoma
     Dates: start: 20241028, end: 20250305
  3. FLUOROURACIL [Suspect]
     Active Substance: FLUOROURACIL
     Indication: Rectal adenocarcinoma
     Dates: start: 20241028, end: 20250305

REACTIONS (3)
  - Neuropathy peripheral [Recovering/Resolving]
  - Gastrooesophageal reflux disease [Recovered/Resolved]
  - Asthenia [Recovering/Resolving]

NARRATIVE: CASE EVENT DATE: 20241108
